FAERS Safety Report 15958692 (Version 2)
Quarter: 2019Q1

REPORT INFORMATION
  Report Type: Spontaneous
  Country: US (occurrence: US)
  Receive Date: 20190213
  Receipt Date: 20190311
  Transmission Date: 20190417
  Serious: No
  Sender: FDA-Public Use
  Company Number: US-VIFOR (INTERNATIONAL) INC.-VIT-2019-00991

PATIENT
  Age: 56 Year
  Sex: Male
  Weight: 86.26 kg

DRUGS (13)
  1. PLAVIX [Concomitant]
     Active Substance: CLOPIDOGREL BISULFATE
  2. TACROLIMUS. [Concomitant]
     Active Substance: TACROLIMUS
  3. METFORMIN HCL [Concomitant]
     Active Substance: METFORMIN HYDROCHLORIDE
  4. PREDNISONE. [Concomitant]
     Active Substance: PREDNISONE
  5. CARVEDILOL. [Concomitant]
     Active Substance: CARVEDILOL
  6. ATORVASTATIN CALCIUM. [Concomitant]
     Active Substance: ATORVASTATIN CALCIUM
  7. IMURAN [Concomitant]
     Active Substance: AZATHIOPRINE
  8. LANTUS [Concomitant]
     Active Substance: INSULIN GLARGINE
  9. GLIPIZIDE. [Concomitant]
     Active Substance: GLIPIZIDE
  10. VELTASSA [Suspect]
     Active Substance: PATIROMER
     Indication: HYPEROSMOLAR STATE
     Dates: start: 20190109, end: 201901
  11. NOVOLOG [Concomitant]
     Active Substance: INSULIN ASPART
  12. AMLODIPINE BESYLATE. [Concomitant]
     Active Substance: AMLODIPINE BESYLATE
  13. VELTASSA [Suspect]
     Active Substance: PATIROMER
     Indication: HYPERNATRAEMIA

REACTIONS (3)
  - Malaise [Unknown]
  - Diarrhoea [Unknown]
  - Off label use [Unknown]

NARRATIVE: CASE EVENT DATE: 201901
